FAERS Safety Report 5928743-9 (Version None)
Quarter: 2008Q4

REPORT INFORMATION
  Report Type: 
  Country: None (occurrence: None)
  Receive Date: 20081023
  Receipt Date: 20081010
  Transmission Date: 20090506
  Serious: Yes (Hospitalization)
  Sender: FDA-Public Use
  Company Number: JP-MERCK-0810USA02546

PATIENT
  Age: 29 Year
  Sex: Female

DRUGS (6)
  1. PRIMAXIN [Suspect]
     Indication: PANCREATITIS ACUTE
     Route: 042
     Dates: start: 20070813, end: 20070820
  2. NAFAMOSTAT MESYLATE [Suspect]
     Indication: PANCREATITIS ACUTE
     Route: 051
     Dates: start: 20070813
  3. GABEXATE MESYLATE [Suspect]
     Indication: PANCREATITIS ACUTE
     Route: 051
     Dates: start: 20070730, end: 20070812
  4. MEROPEN [Suspect]
     Indication: PANCREATITIS ACUTE
     Route: 042
     Dates: start: 20070730, end: 20070812
  5. PEPCID [Suspect]
     Indication: PANCREATITIS ACUTE
     Route: 042
     Dates: start: 20070730, end: 20070820
  6. PEPCID [Suspect]
     Route: 048
     Dates: start: 20070821, end: 20070827

REACTIONS (1)
  - LIVER DISORDER [None]
